FAERS Safety Report 9474641 (Version 1)
Quarter: 2013Q3

REPORT INFORMATION
  Report Type: Spontaneous
  Country: US (occurrence: US)
  Receive Date: 20130823
  Receipt Date: 20130823
  Transmission Date: 20140515
  Serious: Yes (Other)
  Sender: FDA-Public Use
  Company Number: CHPA2013US013302

PATIENT
  Age: 64 Year
  Sex: Female

DRUGS (2)
  1. GAS-X UNKNOWN [Suspect]
     Indication: FLATULENCE
     Dosage: UNK, UNK
     Route: 048
  2. MAALOX                                  /USA/ [Concomitant]
     Dosage: UNK, UNK

REACTIONS (1)
  - Urinary tract infection [Unknown]
